FAERS Safety Report 23062941 (Version 2)
Quarter: 2023Q4

REPORT INFORMATION
  Report Type: Spontaneous
  Country: US (occurrence: US)
  Receive Date: 20231013
  Receipt Date: 20231020
  Transmission Date: 20240110
  Serious: Yes (Hospitalization, Other)
  Sender: FDA-Public Use
  Company Number: US-UNITED THERAPEUTICS-UNT-2023-021461

PATIENT
  Sex: Female

DRUGS (12)
  1. REMODULIN [Suspect]
     Active Substance: TREPROSTINIL
     Indication: Pulmonary arterial hypertension
     Dosage: 0.01837 ?G/KG, CONTINUING
     Route: 058
     Dates: start: 2023, end: 2023
  2. REMODULIN [Suspect]
     Active Substance: TREPROSTINIL
     Dosage: 0.02015 ?G/KG, CONTINUING
     Route: 058
     Dates: start: 2023
  3. REMODULIN [Suspect]
     Active Substance: TREPROSTINIL
     Dosage: UNK, CONTINUING
     Route: 058
     Dates: start: 202306
  4. REMODULIN [Suspect]
     Active Substance: TREPROSTINIL
     Indication: Pulmonary arterial hypertension
     Dosage: 0.032 ?G/KG, CONTINUING
     Route: 058
     Dates: start: 2023, end: 2023
  5. REMODULIN [Suspect]
     Active Substance: TREPROSTINIL
     Dosage: 0.03675 ?G/KG, CONTINUING
     Route: 058
     Dates: start: 2023, end: 2023
  6. REMODULIN [Suspect]
     Active Substance: TREPROSTINIL
     Dosage: 0.03912 ?G/KG, CONTINUING
     Route: 058
     Dates: start: 2023, end: 2023
  7. REMODULIN [Suspect]
     Active Substance: TREPROSTINIL
     Dosage: 0.04149 ?G/KG, CONTINUING
     Route: 058
     Dates: start: 2023
  8. REMODULIN [Suspect]
     Active Substance: TREPROSTINIL
     Dosage: UNK, CONTINUING
     Route: 058
     Dates: start: 2023
  9. REMODULIN [Suspect]
     Active Substance: TREPROSTINIL
     Indication: Pulmonary arterial hypertension
     Dosage: 0.045 ?G/KG, CONTINUING
     Route: 058
     Dates: start: 2023, end: 2023
  10. REMODULIN [Suspect]
     Active Substance: TREPROSTINIL
     Dosage: 0.04505 ?G/KG, CONTINUING
     Route: 058
     Dates: start: 2023
  11. REMODULIN [Suspect]
     Active Substance: TREPROSTINIL
     Dosage: UNK, CONTINUING
     Route: 058
     Dates: start: 202307
  12. LETAIRIS [Concomitant]
     Active Substance: AMBRISENTAN
     Indication: Product used for unknown indication
     Dosage: UNK
     Route: 065

REACTIONS (19)
  - Pulmonary arterial hypertension [Unknown]
  - Fluid retention [Unknown]
  - Ascites [Recovering/Resolving]
  - Infusion site pain [Unknown]
  - Back pain [Unknown]
  - Pain in extremity [Unknown]
  - Fatigue [Not Recovered/Not Resolved]
  - Nausea [Not Recovered/Not Resolved]
  - Asthenia [Unknown]
  - Decreased appetite [Unknown]
  - Abdominal distension [Not Recovered/Not Resolved]
  - Disorientation [Not Recovered/Not Resolved]
  - Headache [Unknown]
  - Abdominal discomfort [Unknown]
  - Limb discomfort [Unknown]
  - Hypotension [Unknown]
  - Flatulence [Not Recovered/Not Resolved]
  - Diarrhoea [Not Recovered/Not Resolved]
  - Oedema [Recovering/Resolving]

NARRATIVE: CASE EVENT DATE: 20230101
